FAERS Safety Report 24825450 (Version 1)
Quarter: 2025Q1

REPORT INFORMATION
  Report Type: Spontaneous
  Country: US (occurrence: US)
  Receive Date: 20250109
  Receipt Date: 20250109
  Transmission Date: 20250408
  Serious: Yes (Hospitalization, Other)
  Sender: AMGEN
  Company Number: US-AMGEN-USASP2025000687

PATIENT
  Age: 72 Year
  Sex: Female

DRUGS (3)
  1. ADALIMUMAB [Suspect]
     Active Substance: ADALIMUMAB
     Indication: Colitis ulcerative
     Route: 065
  2. PREDNISONE [Suspect]
     Active Substance: PREDNISONE
     Indication: Cytomegalovirus viraemia
     Route: 065
  3. INFLIXIMAB [Suspect]
     Active Substance: INFLIXIMAB
     Indication: Colitis ulcerative
     Route: 065

REACTIONS (11)
  - Colitis ulcerative [Unknown]
  - Bacteroides bacteraemia [Recovered/Resolved]
  - Colitis [Unknown]
  - Immune thrombocytopenia [Unknown]
  - Cytomegalovirus viraemia [Unknown]
  - Serum sickness-like reaction [Unknown]
  - Deep vein thrombosis [Unknown]
  - Proctitis [Unknown]
  - Epistaxis [Unknown]
  - Treatment failure [Unknown]
  - Off label use [Unknown]
